FAERS Safety Report 19727456 (Version 2)
Quarter: 2023Q1

REPORT INFORMATION
  Report Type: Spontaneous
  Country: DE (occurrence: DE)
  Receive Date: 20210819
  Receipt Date: 20230202
  Transmission Date: 20230417
  Serious: Yes (Death)
  Sender: FDA-Public Use
  Company Number: DE-NOVARTISPH-NVSC2021DE186426

PATIENT
  Sex: Female

DRUGS (12)
  1. TRAMETINIB [Suspect]
     Active Substance: TRAMETINIB
     Indication: Cardiac hypertrophy
     Dosage: 0.03 MG/KG, QD
     Route: 065
  2. TRAMETINIB [Suspect]
     Active Substance: TRAMETINIB
     Indication: Cardiac failure
  3. TRAMETINIB [Suspect]
     Active Substance: TRAMETINIB
     Indication: Arrhythmia supraventricular
  4. TRAMETINIB [Suspect]
     Active Substance: TRAMETINIB
     Indication: Generalised oedema
  5. TRAMETINIB [Suspect]
     Active Substance: TRAMETINIB
     Indication: Haemodynamic instability
  6. TRAMETINIB [Suspect]
     Active Substance: TRAMETINIB
     Indication: Lung assist device therapy
  7. SIROLIMUS [Suspect]
     Active Substance: SIROLIMUS
     Indication: Cardiac hypertrophy
     Dosage: 1.5 MG/M2
     Route: 065
  8. SIROLIMUS [Suspect]
     Active Substance: SIROLIMUS
     Indication: Cardiac failure
  9. SIROLIMUS [Suspect]
     Active Substance: SIROLIMUS
     Indication: Arrhythmia supraventricular
  10. SIROLIMUS [Suspect]
     Active Substance: SIROLIMUS
     Indication: Generalised oedema
  11. SIROLIMUS [Suspect]
     Active Substance: SIROLIMUS
     Indication: Haemodynamic instability
  12. SIROLIMUS [Suspect]
     Active Substance: SIROLIMUS
     Indication: Lung assist device therapy

REACTIONS (2)
  - Death [Fatal]
  - Product use in unapproved indication [Unknown]
